FAERS Safety Report 15956868 (Version 1)
Quarter: 2019Q1

REPORT INFORMATION
  Report Type: Spontaneous
  Country: US (occurrence: US)
  Receive Date: 20190213
  Receipt Date: 20190213
  Transmission Date: 20190417
  Serious: Yes (Death)
  Sender: FDA-Public Use
  Company Number: US-PFIZER INC-2016598692

PATIENT
  Age: 41 Year
  Sex: Male

DRUGS (1)
  1. IBRANCE [Suspect]
     Active Substance: PALBOCICLIB
     Indication: MALIGNANT MELANOMA
     Dosage: 125 MG, UNK

REACTIONS (2)
  - Death [Fatal]
  - Product use in unapproved indication [Unknown]
